FAERS Safety Report 17297568 (Version 2)
Quarter: 2020Q1

REPORT INFORMATION
  Report Type: Spontaneous
  Country: DK (occurrence: DK)
  Receive Date: 20200121
  Receipt Date: 20200206
  Transmission Date: 20200409
  Serious: Yes (Other)
  Sender: FDA-Public Use
  Company Number: DK-SHIRE-DK202001826

PATIENT

DRUGS (1)
  1. ELVANSE [Suspect]
     Active Substance: LISDEXAMFETAMINE DIMESYLATE
     Indication: ATTENTION DEFICIT/HYPERACTIVITY DISORDER
     Dosage: STYRKE: 40 MG + 30 MG. DOSIS: 40 MG MORGEN, 30 MG AFTEN.
     Route: 048
     Dates: start: 20190709

REACTIONS (5)
  - Suicidal ideation [Unknown]
  - Anxiety [Unknown]
  - Middle insomnia [Unknown]
  - Psychotic disorder [Unknown]
  - Obsessive thoughts [Unknown]
